FAERS Safety Report 10130769 (Version 1)
Quarter: 2014Q2

REPORT INFORMATION
  Report Type: Spontaneous
  Country: US (occurrence: None)
  Receive Date: 20140425
  Receipt Date: 20140425
  Transmission Date: 20141212
  Serious: Yes (Hospitalization, Disabling)
  Sender: FDA-Public Use
  Company Number: None

PATIENT
  Age: 64 Year
  Sex: Female
  Weight: 76.9 kg

DRUGS (6)
  1. HALAVEN [Suspect]
     Indication: BREAST CANCER METASTATIC
     Route: 042
  2. LETROZOLE [Concomitant]
  3. ANASTROZOLE [Concomitant]
  4. XELODA [Concomitant]
  5. TAXOL [Concomitant]
  6. ERIBULIN/XGEVA [Concomitant]

REACTIONS (1)
  - Cardiac failure [None]
